FAERS Safety Report 4573535-9 (Version None)
Quarter: 2005Q1

REPORT INFORMATION
  Report Type: 
  Country: None (occurrence: None)
  Receive Date: 20050208
  Receipt Date: 20040913
  Transmission Date: 20050727
  Serious: No
  Sender: FDA-Public Use
  Company Number: US-GLAXOSMITHKLINE-A0525412A

PATIENT
  Age: 19 Year
  Sex: Female

DRUGS (4)
  1. PAXIL [Suspect]
     Indication: DEPRESSION
     Dosage: 20MG PER DAY
     Route: 048
     Dates: start: 20040908
  2. ZYRTEC [Concomitant]
  3. YASMIN [Concomitant]
  4. NEXIUM [Concomitant]

REACTIONS (3)
  - HYPERHIDROSIS [None]
  - TREMOR [None]
  - VISION BLURRED [None]
